FAERS Safety Report 5982262-2 (Version None)
Quarter: 2008Q4

REPORT INFORMATION
  Report Type: 
  Country: None (occurrence: None)
  Receive Date: 20081208
  Receipt Date: 20081201
  Transmission Date: 20090506
  Serious: Yes (Hospitalization)
  Sender: FDA-Public Use
  Company Number: B0541967A

PATIENT
  Age: 51 Year
  Sex: Female
  Weight: 63 kg

DRUGS (3)
  1. LAPATINIB [Suspect]
     Indication: BREAST CANCER
     Dosage: 1250MG PER DAY
     Route: 048
     Dates: start: 20080519
  2. MYOCET [Suspect]
     Indication: BREAST CANCER
     Dosage: 60MG THREE TIMES PER WEEK
     Route: 042
     Dates: start: 20080519
  3. PACLITAXEL [Suspect]
     Indication: BREAST CANCER
     Dosage: 175MG THREE TIMES PER WEEK
     Route: 042
     Dates: start: 20080519

REACTIONS (4)
  - C-REACTIVE PROTEIN INCREASED [None]
  - INFECTION [None]
  - PYREXIA [None]
  - SEPSIS [None]
